FAERS Safety Report 7032233-2 (Version None)
Quarter: 2010Q4

REPORT INFORMATION
  Report Type: 
  Country: None (occurrence: None)
  Receive Date: 20101007
  Receipt Date: 20100323
  Transmission Date: 20110411
  Serious: Yes (Life-Threatening)
  Sender: FDA-Public Use
  Company Number: MX-BRISTOL-MYERS SQUIBB COMPANY-15034713

PATIENT
  Age: 57 Year
  Sex: Female
  Weight: 42 kg

DRUGS (3)
  1. CETUXIMAB [Suspect]
     Indication: NON-SMALL CELL LUNG CANCER
     Dosage: CETUXIMAB 5MG/ML FIRST INF:15SEP09 RECENT INF:21OCT09
     Route: 042
     Dates: start: 20090915
  2. CARBOPLATIN [Suspect]
     Indication: NON-SMALL CELL LUNG CANCER
     Dosage: 1 OF 21 DAY CYCLE FIRST INF:15SEP09 RECENT INF:14OCT09 INT 28OCT09 AND REST 04NOV09 1DF:5AUC
     Route: 042
     Dates: start: 20090915
  3. GEMCITABINE [Suspect]
     Indication: NON-SMALL CELL LUNG CANCER
     Dosage: 1,8 OF 21 DAY CYCLE RECENT INF:21OCT09 INTERRU 28OCT AND RESTART 04NOV09
     Route: 042
     Dates: start: 20090915

REACTIONS (1)
  - NEUTROPENIA [None]
